FAERS Safety Report 4828141-5 (Version None)
Quarter: 2005Q4

REPORT INFORMATION
  Report Type: 
  Country: None (occurrence: None)
  Receive Date: 20051110
  Receipt Date: 20051102
  Transmission Date: 20060501
  Serious: Yes (Hospitalization)
  Sender: FDA-Public Use
  Company Number: CERZ-10144

PATIENT
  Age: 29 Year
  Sex: Male
  Weight: 90 kg

DRUGS (2)
  1. CEREZYME [Suspect]
     Indication: GAUCHER'S DISEASE
     Dosage: 2200 UNITS Q2WKS IV
     Route: 042
     Dates: start: 20020722
  2. CEREZYME [Suspect]
     Indication: GAUCHER'S DISEASE
     Dosage: 2200 UNITS Q2WKS IV
     Route: 042
     Dates: end: 20020401

REACTIONS (1)
  - ASTROCYTOMA [None]
